FAERS Safety Report 7468128-X (Version None)
Quarter: 2011Q2

REPORT INFORMATION
  Report Type: 
  Country: None (occurrence: None)
  Receive Date: 20110509
  Receipt Date: 20110503
  Transmission Date: 20111010
  Serious: Yes (Life-Threatening, Hospitalization)
  Sender: FDA-Public Use
  Company Number: DE-ELI_LILLY_AND_COMPANY-DE201105001638

PATIENT
  Sex: Male

DRUGS (10)
  1. CISPLATIN [Concomitant]
     Dosage: 40 (UNKNOWN UNITS), D1+2
     Dates: start: 20110215
  2. VINORELBINE [Concomitant]
     Dosage: 25 (UNKNOWN UNITS) D1, OTHER
     Route: 065
     Dates: start: 20110215
  3. VINORELBINE [Concomitant]
     Dosage: 50 MG/M2, D15
     Route: 065
     Dates: start: 20110103
  4. CISPLATIN [Concomitant]
     Dosage: 40 (UNKNOWN UNITS), (D1+2)
     Dates: start: 20110117
  5. CISPLATIN [Concomitant]
     Dosage: 20 MG/M2, UNKNOWN
     Route: 065
     Dates: start: 20101123
  6. VINORELBINE [Concomitant]
     Dosage: 50 MG/M2, DAY 8
     Route: 042
     Dates: start: 20101227
  7. ALIMTA [Suspect]
     Dosage: 500 MG/M2, UNKNOWN
     Route: 065
     Dates: start: 20110314
  8. VINORELBINE [Concomitant]
     Dosage: 15 MG/M2, D1, D8, D15, D29
     Route: 065
     Dates: start: 20101220
  9. VINORELBINE [Concomitant]
     Dosage: 80 MG/M2, 4 CYCLE DAY 8
     Route: 048
     Dates: start: 20110222
  10. VINORELBINE [Concomitant]
     Dosage: 60 MG/M2, DAY 8 OF 3 CYCLE
     Route: 048
     Dates: start: 20110124

REACTIONS (3)
  - RADIATION PNEUMONITIS [None]
  - PNEUMONIA BACTERIAL [None]
  - PNEUMOTHORAX [None]
